FAERS Safety Report 19389162 (Version 5)
Quarter: 2021Q3

REPORT INFORMATION
  Report Type: Report from Study
  Country: RU (occurrence: RU)
  Receive Date: 20210608
  Receipt Date: 20210908
  Transmission Date: 20211014
  Serious: Yes (Other)
  Sender: FDA-Public Use
  Company Number: NVSC2021RU127130

PATIENT
  Age: 64 Year
  Sex: Female

DRUGS (2)
  1. CO PERINEVA [Concomitant]
     Active Substance: INDAPAMIDE\PERINDOPRIL ERBUMINE
     Indication: HYPERTONIA
     Dosage: UNK
     Route: 065
     Dates: start: 20191001
  2. BROLUCIZUMAB. [Suspect]
     Active Substance: BROLUCIZUMAB
     Indication: RETINAL VEIN OCCLUSION
     Dosage: 6 MG
     Route: 031
     Dates: start: 20200113

REACTIONS (1)
  - Retinal vasculitis [Not Recovered/Not Resolved]

NARRATIVE: CASE EVENT DATE: 20210604
